FAERS Safety Report 8033925-9 (Version None)
Quarter: 2012Q1

REPORT INFORMATION
  Report Type: 
  Country: None (occurrence: None)
  Receive Date: 20120110
  Receipt Date: 20120106
  Transmission Date: 20120608
  Serious: Yes (Hospitalization)
  Sender: FDA-Public Use
  Company Number: US-PFIZER INC-2011299163

PATIENT
  Sex: Female
  Weight: 59 kg

DRUGS (2)
  1. FISH OIL [Concomitant]
     Indication: DRUG HYPERSENSITIVITY
     Dosage: UNK
  2. CHANTIX [Suspect]
     Indication: SMOKING CESSATION THERAPY
     Dosage: 0.5 MG, 1X/DAY
     Route: 048
     Dates: start: 20110201, end: 20110101

REACTIONS (4)
  - CARDIAC DISORDER [None]
  - BLOOD CHOLESTEROL INCREASED [None]
  - ANXIETY [None]
  - DRUG DOSE OMISSION [None]
